FAERS Safety Report 9807527 (Version 1)
Quarter: 2014Q1

REPORT INFORMATION
  Report Type: Spontaneous
  Country: US (occurrence: US)
  Receive Date: 20140110
  Receipt Date: 20140110
  Transmission Date: 20141002
  Serious: No
  Sender: FDA-Public Use
  Company Number: US-SANOFI-AVENTIS-2012SA092866

PATIENT
  Age: 75 Year
  Sex: Female
  Weight: 135 kg

DRUGS (29)
  1. PLAVIX [Suspect]
     Indication: ANTICOAGULANT THERAPY
     Dates: start: 20120914
  2. AMLODIPINE [Concomitant]
  3. ARMOUR THYROID [Concomitant]
  4. BROMELAIN-POS [Concomitant]
  5. MAGNESIUM [Concomitant]
  6. ASPIRIN [Concomitant]
  7. COQ10 [Concomitant]
  8. GLUCOSAMINE [Concomitant]
  9. OMEGA 3 [Concomitant]
  10. PYRIDOXAL PHOSPHATE [Concomitant]
  11. SAM-E [Concomitant]
  12. VITAMIN D [Concomitant]
  13. YEAST [Concomitant]
  14. MELATONIN [Concomitant]
  15. HERBAL EXTRACTS [Concomitant]
  16. SYNAPAUSE E3 [Concomitant]
  17. OPHTHALMOLOGICALS [Concomitant]
  18. THERAPEUTIC-M [Concomitant]
  19. ARNICA MONTANA [Concomitant]
  20. PLAVIX [Concomitant]
  21. ISOSORBIDE [Concomitant]
     Dates: start: 20120915
  22. THERAPEUTIC-M [Concomitant]
  23. HORMONES AND RELATED AGENTS [Concomitant]
  24. THERAPEUTIC-M [Concomitant]
  25. OTHER HORMONES [Concomitant]
  26. OTHER HORMONES [Concomitant]
  27. CARNOSINE [Concomitant]
  28. LIVER EXTRACT [Concomitant]
  29. SAM-E [Concomitant]

REACTIONS (10)
  - Palpitations [Not Recovered/Not Resolved]
  - Insomnia [Not Recovered/Not Resolved]
  - Tremor [Not Recovered/Not Resolved]
  - Constipation [Not Recovered/Not Resolved]
  - Chest pain [Not Recovered/Not Resolved]
  - Gastrointestinal pain [Not Recovered/Not Resolved]
  - Malaise [Not Recovered/Not Resolved]
  - Nasopharyngitis [Not Recovered/Not Resolved]
  - Headache [Not Recovered/Not Resolved]
  - Tearfulness [Not Recovered/Not Resolved]
